FAERS Safety Report 10818034 (Version 3)
Quarter: 2015Q1

REPORT INFORMATION
  Report Type: Spontaneous
  Country: US (occurrence: US)
  Receive Date: 20150218
  Receipt Date: 20150226
  Transmission Date: 20150721
  Serious: Yes (Hospitalization)
  Sender: FDA-Public Use
  Company Number: US-JNJFOC-20150212398

PATIENT
  Age: 61 Year
  Sex: Male

DRUGS (12)
  1. PHENERGAN [Concomitant]
     Active Substance: PROMETHAZINE HYDROCHLORIDE
     Indication: NAUSEA
     Dosage: 12 H
  2. VITAMIN C [Concomitant]
     Active Substance: ASCORBIC ACID
  3. LUTEIN [Concomitant]
     Active Substance: LUTEIN
  4. ASA [Concomitant]
     Active Substance: ASPIRIN
     Indication: HEADACHE
     Route: 048
     Dates: end: 2015
  5. GABAPENTIN. [Concomitant]
     Active Substance: GABAPENTIN
     Route: 048
  6. IMMUNOGLOBULIN [Concomitant]
     Active Substance: HUMAN IMMUNOGLOBULIN G
     Route: 042
  7. IMBRUVICA [Suspect]
     Active Substance: IBRUTINIB
     Indication: CHRONIC LYMPHOCYTIC LEUKAEMIA
     Route: 065
     Dates: start: 201410, end: 20150116
  8. ACETAMINOPHEN. [Concomitant]
     Active Substance: ACETAMINOPHEN
     Indication: PAIN
     Dosage: EVERY 6 HOURS
  9. VICODIN [Concomitant]
     Active Substance: ACETAMINOPHEN\HYDROCODONE BITARTRATE
     Indication: PAIN
     Dosage: 1 TABLET EVERY 6 HOURS
  10. VITAMIN E (TOCOPHERYL ACETATE) [Concomitant]
  11. VITAMIN A [Concomitant]
     Active Substance: VITAMIN A
  12. IBUPROFEN. [Concomitant]
     Active Substance: IBUPROFEN
     Dosage: 200
     Dates: end: 2015

REACTIONS (12)
  - Dyspnoea [Recovered/Resolved]
  - Leukocytosis [Not Recovered/Not Resolved]
  - Colitis [Unknown]
  - Decreased appetite [Recovered/Resolved]
  - Pallor [Recovered/Resolved]
  - Diarrhoea haemorrhagic [Recovering/Resolving]
  - Mobility decreased [Recovered/Resolved]
  - Hyperglycaemia [Recovered/Resolved]
  - Lower gastrointestinal haemorrhage [Recovering/Resolving]
  - Rectal haemorrhage [Recovering/Resolving]
  - Abdominal pain [Recovered/Resolved]
  - Nausea [Recovered/Resolved]

NARRATIVE: CASE EVENT DATE: 2014
